FAERS Safety Report 10235558 (Version 1)
Quarter: 2014Q2

REPORT INFORMATION
  Report Type: Spontaneous
  Country: US (occurrence: None)
  Receive Date: 20140612
  Receipt Date: 20140612
  Transmission Date: 20141212
  Serious: Yes (Life-Threatening, Disabling)
  Sender: FDA-Public Use
  Company Number: None

PATIENT
  Age: 66 Year
  Sex: Female
  Weight: 70.31 kg

DRUGS (1)
  1. NORVASC [Suspect]
     Indication: HYPERTENSION
     Route: 048
     Dates: start: 20120310, end: 20140510

REACTIONS (7)
  - Gastric dilatation [None]
  - Alopecia [None]
  - Peripheral swelling [None]
  - Peripheral swelling [None]
  - Eye swelling [None]
  - Gait disturbance [None]
  - Apparent death [None]
